FAERS Safety Report 23893740 (Version 1)
Quarter: 2024Q2

REPORT INFORMATION
  Report Type: Spontaneous
  Country: US (occurrence: None)
  Receive Date: 20240524
  Receipt Date: 20240524
  Transmission Date: 20240715
  Serious: No
  Sender: FDA-Public Use
  Company Number: US-ROCHE-3462823

PATIENT
  Sex: Female

DRUGS (1)
  1. ACTEMRA [Suspect]
     Active Substance: TOCILIZUMAB
     Indication: Giant cell arteritis
     Route: 058

REACTIONS (10)
  - Fatigue [Unknown]
  - Dyspnoea [Unknown]
  - Contusion [Unknown]
  - Nausea [Unknown]
  - Arthralgia [Unknown]
  - Peripheral swelling [Unknown]
  - Alopecia [Unknown]
  - Restless legs syndrome [Unknown]
  - Neck pain [Unknown]
  - Insomnia [Unknown]
